FAERS Safety Report 9355346 (Version 2)
Quarter: 2013Q3

REPORT INFORMATION
  Report Type: Spontaneous
  Country: US (occurrence: US)
  Receive Date: 20130619
  Receipt Date: 20130906
  Transmission Date: 20140515
  Serious: Yes (Hospitalization)
  Sender: FDA-Public Use
  Company Number: US-BAYER-2013-075247

PATIENT
  Age: 41 Year
  Sex: Female
  Weight: 45.35 kg

DRUGS (23)
  1. GIANVI [Suspect]
     Indication: PREMENSTRUAL SYNDROME
     Dosage: UNK
     Dates: start: 201009, end: 20110515
  2. YAZ [Suspect]
     Indication: MENSTRUAL CYCLE MANAGEMENT
     Dosage: UNK
     Dates: start: 20110923, end: 20120516
  3. YASMIN [Suspect]
  4. LISINOPRIL [Concomitant]
     Indication: HYPERTENSION
     Dosage: 2.5 MG, UNK
     Dates: start: 1993
  5. VALIUM [Concomitant]
     Indication: MUSCLE RELAXANT THERAPY
     Dosage: 5 MG, UNK
     Dates: start: 2006
  6. DIAZEPAM [Concomitant]
     Indication: MUSCLE RELAXANT THERAPY
     Dosage: 5 MG, UNK
  7. CELEXA [Concomitant]
     Indication: DEPRESSION
     Dosage: 20 MG, UNK
     Dates: start: 2008
  8. CITALOPRAM [Concomitant]
     Indication: DEPRESSION
     Dosage: 20 MG, UNK
  9. RELPAX [Concomitant]
     Dosage: 40 MG, UNK
     Dates: start: 2010
  10. ADVIL [Concomitant]
     Dosage: 400 MG, 10 TABLETS WITHIN 20 DAYS PRIOR
  11. AZITHROMYCIN [Concomitant]
     Indication: PNEUMONIA
     Dosage: 250 MG, UNK
     Dates: start: 20110426
  12. NITROFURANTOIN [Concomitant]
     Dosage: UNK
     Dates: start: 2010, end: 201105
  13. FAMOTIDINE [Concomitant]
     Indication: REFLUX GASTRITIS
     Dosage: UNK
     Dates: start: 20110506
  14. COREG [Concomitant]
     Indication: HYPERTENSION
     Dosage: 6.25 MG, UNK
     Dates: start: 1993, end: 201106
  15. CARVEDILOL [Concomitant]
     Indication: HYPERTENSION
     Dosage: 6.25 MG, UNK
  16. AMOXICILLIN [Concomitant]
     Dosage: 500 MG, UNK
  17. OXYCODONE [Concomitant]
     Dosage: 5 MG, UNK
  18. VITAMIN C [Concomitant]
  19. VITAMIN E [Concomitant]
  20. SELENIUM [Concomitant]
  21. OSCAL D [Concomitant]
  22. CYCLOBENZAPRINE [Concomitant]
     Dosage: 5 MG, UNK
  23. VITAMIN D3 [Concomitant]

REACTIONS (9)
  - Pulmonary embolism [None]
  - Injury [None]
  - Pain [None]
  - Emotional distress [None]
  - Depression [None]
  - Fear of death [None]
  - Nervousness [None]
  - Dyspnoea [None]
  - Contusion [None]
